FAERS Safety Report 23902770 (Version 1)
Quarter: 2024Q2

REPORT INFORMATION
  Report Type: Spontaneous
  Country: FR (occurrence: FR)
  Receive Date: 20240527
  Receipt Date: 20240527
  Transmission Date: 20240716
  Serious: Yes (Other)
  Sender: FDA-Public Use
  Company Number: FR-STRIDES ARCOLAB LIMITED-2024SP006069

PATIENT
  Age: 54 Year
  Sex: Male

DRUGS (5)
  1. AMANTADINE [Suspect]
     Active Substance: AMANTADINE
     Indication: Catatonia
     Dosage: 100 MILLIGRAM, QD
     Route: 065
  2. ARIPIPRAZOLE [Concomitant]
     Active Substance: ARIPIPRAZOLE
     Indication: Major depression
     Dosage: 20 MILLIGRAM, QD
     Route: 065
  3. LITHIUM [Concomitant]
     Active Substance: LITHIUM
     Indication: Major depression
     Dosage: 1200 MILLIGRAM, QD (RECEIVED LITHIUM SALTS)
     Route: 065
  4. LORAZEPAM [Concomitant]
     Active Substance: LORAZEPAM
     Indication: Catatonia
     Dosage: 7 MILLIGRAM, QD
     Route: 065
  5. LORAZEPAM [Concomitant]
     Active Substance: LORAZEPAM
     Dosage: 10 MILLIGRAM, QD
     Route: 065

REACTIONS (2)
  - Hypersexuality [Recovered/Resolved]
  - Off label use [Unknown]
